FAERS Safety Report 8794904 (Version 2)
Quarter: 2013Q4

REPORT INFORMATION
  Report Type: Spontaneous
  Country: US (occurrence: US)
  Receive Date: 20120917
  Receipt Date: 20131031
  Transmission Date: 20140711
  Serious: Yes (Hospitalization)
  Sender: FDA-Public Use
  Company Number: US-009507513-1209USA003596

PATIENT
  Sex: Female

DRUGS (9)
  1. ISENTRESS [Suspect]
     Dosage: 400 MG, BID
     Route: 048
  2. TRUVADA [Suspect]
     Dosage: 1 DF, UNK
  3. TRANXENE [Suspect]
     Dosage: 5 MG, UNK
     Route: 048
  4. CIMETIDINE [Suspect]
     Dosage: 200 MG, BID
     Route: 048
  5. GLIVEC [Concomitant]
  6. HYDREA [Concomitant]
  7. ALLOPURINOL [Concomitant]
  8. SEROPLEX [Concomitant]
  9. KARDEGIC [Concomitant]

REACTIONS (3)
  - Muscular weakness [Unknown]
  - Vertigo [Unknown]
  - Asthenia [Unknown]
